FAERS Safety Report 12328572 (Version 1)
Quarter: 2016Q2

REPORT INFORMATION
  Report Type: Spontaneous
  Country: US (occurrence: US)
  Receive Date: 20160503
  Receipt Date: 20160503
  Transmission Date: 20160815
  Serious: No
  Sender: FDA-Public Use
  Company Number: US-BEH-2015049289

PATIENT
  Age: 45 Year
  Sex: Female
  Weight: 127.5 kg

DRUGS (28)
  1. REQUIP [Concomitant]
     Active Substance: ROPINIROLE HYDROCHLORIDE
  2. SINGULAIR [Concomitant]
     Active Substance: MONTELUKAST SODIUM
  3. WELLBUTRIN [Concomitant]
     Active Substance: BUPROPION HYDROCHLORIDE
  4. ABILIFY [Concomitant]
     Active Substance: ARIPIPRAZOLE
  5. LUNESTA [Concomitant]
     Active Substance: ESZOPICLONE
  6. LYRICA [Concomitant]
     Active Substance: PREGABALIN
  7. SEROQUEL [Concomitant]
     Active Substance: QUETIAPINE FUMARATE
  8. SYMBICORT [Concomitant]
     Active Substance: BUDESONIDE\FORMOTEROL FUMARATE DIHYDRATE
  9. DICLOFENAC [Concomitant]
     Active Substance: DICLOFENAC
  10. ALBUTEROL. [Concomitant]
     Active Substance: ALBUTEROL
  11. COUMADIN [Concomitant]
     Active Substance: WARFARIN SODIUM
  12. VALIUM [Concomitant]
     Active Substance: DIAZEPAM
  13. CLARITIN [Concomitant]
     Active Substance: LORATADINE
  14. HIZENTRA [Suspect]
     Active Substance: HUMAN IMMUNOGLOBULIN G
     Indication: IMMUNODEFICIENCY COMMON VARIABLE
     Route: 058
     Dates: start: 20150226
  15. LANTUS [Concomitant]
     Active Substance: INSULIN GLARGINE
  16. XOPENEX [Concomitant]
     Active Substance: LEVALBUTEROL HYDROCHLORIDE
  17. CYMBALTA [Concomitant]
     Active Substance: DULOXETINE HYDROCHLORIDE
  18. TERBINAFINE. [Concomitant]
     Active Substance: TERBINAFINE
  19. FUROSEMIDE. [Concomitant]
     Active Substance: FUROSEMIDE
  20. VENTOLIN [Concomitant]
     Active Substance: ALBUTEROL SULFATE
  21. BENAZEPRIL [Concomitant]
     Active Substance: BENAZEPRIL HYDROCHLORIDE
  22. HUMULIN NOS [Concomitant]
     Active Substance: INSULIN HUMAN
  23. COREG [Concomitant]
     Active Substance: CARVEDILOL
  24. METHADONE [Concomitant]
     Active Substance: METHADONE HYDROCHLORIDE
  25. COLACE [Concomitant]
     Active Substance: DOCUSATE SODIUM
  26. IMITREX [Concomitant]
     Active Substance: SUMATRIPTAN SUCCINATE
  27. PRILOSEC [Concomitant]
     Active Substance: OMEPRAZOLE MAGNESIUM
  28. NYSTATIN. [Concomitant]
     Active Substance: NYSTATIN

REACTIONS (2)
  - Influenza like illness [Recovered/Resolved]
  - Headache [Recovered/Resolved]

NARRATIVE: CASE EVENT DATE: 20150226
